FAERS Safety Report 26094471 (Version 1)
Quarter: 2025Q4

REPORT INFORMATION
  Report Type: Spontaneous
  Country: EU (occurrence: EU)
  Receive Date: 20251126
  Receipt Date: 20251126
  Transmission Date: 20260118
  Serious: Yes (Hospitalization)
  Sender: PFIZER
  Company Number: None

PATIENT
  Age: 69 Year
  Sex: Male

DRUGS (5)
  1. CYTARABINE [Suspect]
     Active Substance: CYTARABINE
     Indication: B-cell lymphoma
     Dosage: 1 MG/M2, 2X/DAY
     Route: 042
     Dates: start: 20251025, end: 20251026
  2. METHOTREXATE SODIUM [Suspect]
     Active Substance: METHOTREXATE SODIUM
     Indication: B-cell lymphoma
     Dosage: UNK
     Route: 037
     Dates: start: 20250923, end: 20250923
  3. METHOTREXATE SODIUM [Suspect]
     Active Substance: METHOTREXATE SODIUM
     Dosage: 1700 MG, SINGLE
     Route: 042
     Dates: start: 20251024, end: 20251024
  4. RITUXIMAB [Concomitant]
     Active Substance: RITUXIMAB
     Indication: B-cell lymphoma
     Dosage: 716 MG, WEEKLY
     Route: 042
     Dates: start: 20250903, end: 20250909
  5. RITUXIMAB [Concomitant]
     Active Substance: RITUXIMAB
     Dosage: 686 MG, SINGLE
     Route: 042
     Dates: start: 20251023, end: 20251023

REACTIONS (1)
  - Mixed liver injury [Recovered/Resolved]

NARRATIVE: CASE EVENT DATE: 20251026
